FAERS Safety Report 6573768-6 (Version None)
Quarter: 2010Q1

REPORT INFORMATION
  Report Type: 
  Country: None (occurrence: None)
  Receive Date: 20100208
  Receipt Date: 20100202
  Transmission Date: 20100710
  Serious: Yes (Hospitalization)
  Sender: FDA-Public Use
  Company Number: B0631782A

PATIENT
  Age: 60 Year
  Sex: Male

DRUGS (1)
  1. PAXIL CP [Suspect]
     Indication: PANIC DISORDER
     Route: 065

REACTIONS (2)
  - ABDOMINAL PAIN UPPER [None]
  - MUSCLE ATROPHY [None]
